FAERS Safety Report 25893766 (Version 1)
Quarter: 2025Q4

REPORT INFORMATION
  Report Type: Report from Study
  Country: US (occurrence: US)
  Receive Date: 20251008
  Receipt Date: 20251008
  Transmission Date: 20260117
  Serious: Yes (Other)
  Sender: DECIPHERA PHARMACEUTICALS
  Company Number: US-DECIPHERA PHARMACEUTICALS LLC-2025US001246

PATIENT
  Age: 69 Year
  Sex: Female
  Weight: 70.689 kg

DRUGS (1)
  1. QINLOCK [Suspect]
     Active Substance: RIPRETINIB
     Indication: Gastrointestinal stromal tumour
     Dosage: 150 MILLIGRAM, QD
     Dates: start: 20250128

REACTIONS (5)
  - Metastases to liver [Unknown]
  - Diarrhoea [Unknown]
  - Alopecia [Unknown]
  - Hypertension [Unknown]
  - Constipation [Unknown]

NARRATIVE: CASE EVENT DATE: 20250101
